FAERS Safety Report 16877747 (Version 2)
Quarter: 2019Q4

REPORT INFORMATION
  Report Type: Not Available
  Country: US (occurrence: US)
  Receive Date: 20191002
  Receipt Date: 20191017
  Transmission Date: 20200122
  Serious: Yes (Other)
  Sender: FDA-Public Use
  Company Number: US-NEUROCRINE BIOSCIENCES INC.-2019NBI02797

PATIENT
  Age: 55 Year
  Sex: Female

DRUGS (12)
  1. PRAZOSIN. [Concomitant]
     Active Substance: PRAZOSIN
  2. TRAZODONE [Concomitant]
     Active Substance: TRAZODONE HYDROCHLORIDE
  3. ZOFRAN [Concomitant]
     Active Substance: ONDANSETRON HYDROCHLORIDE
     Dosage: UP TO THREE TIMES A DAY AS NEEDED
  4. LISINOPRIL. [Concomitant]
     Active Substance: LISINOPRIL
  5. INGREZZA [Suspect]
     Active Substance: VALBENAZINE
     Route: 048
     Dates: start: 20181108
  6. NAPROXEN. [Concomitant]
     Active Substance: NAPROXEN
  7. INGREZZA [Suspect]
     Active Substance: VALBENAZINE
     Indication: TARDIVE DYSKINESIA
     Route: 048
     Dates: start: 20181031, end: 20181107
  8. DESVENLAFAXINE ER [Concomitant]
     Active Substance: DESVENLAFAXINE
  9. VENTOLIN [Concomitant]
     Active Substance: ALBUTEROL SULFATE
  10. PROTONIX [Concomitant]
     Active Substance: PANTOPRAZOLE SODIUM
  11. CLONAZEPAM. [Concomitant]
     Active Substance: CLONAZEPAM
  12. QUETIAPINE. [Concomitant]
     Active Substance: QUETIAPINE

REACTIONS (2)
  - Foot fracture [Recovered/Resolved]
  - Fall [Recovered/Resolved]

NARRATIVE: CASE EVENT DATE: 20190913
